FAERS Safety Report 9013897 (Version 1)
Quarter: 2012Q4

REPORT INFORMATION
  Report Type: 
  Country: US (occurrence: None)
  Receive Date: 20121231
  Receipt Date: 20121231
  Transmission Date: 20130627
  Serious: Yes (Other)
  Sender: FDA-Public Use
  Company Number: KAD201212-000531

PATIENT
  Age: 65 Year
  Sex: Male

DRUGS (2)
  1. TOPOTECAN (TOPOTECAN) [Suspect]
  2. CARBOPLATIN (CARBOPLATIN) [Suspect]

REACTIONS (2)
  - Convulsion [None]
  - Cerebral haemorrhage [None]
